FAERS Safety Report 7114637-2 (Version None)
Quarter: 2010Q4

REPORT INFORMATION
  Report Type: 
  Country: None (occurrence: None)
  Receive Date: 20101121
  Receipt Date: 20101109
  Transmission Date: 20110411
  Serious: Yes (Hospitalization)
  Sender: FDA-Public Use
  Company Number: GB-BRISTOL-MYERS SQUIBB COMPANY-15355282

PATIENT
  Age: 58 Year
  Sex: Male

DRUGS (6)
  1. BLINDED: APIXABAN [Suspect]
     Indication: THROMBOSIS PROPHYLAXIS
     Route: 048
     Dates: start: 20091005
  2. WARFARIN SODIUM [Suspect]
     Indication: THROMBOSIS PROPHYLAXIS
     Route: 048
     Dates: start: 20091005
  3. PLACEBO [Suspect]
     Indication: THROMBOSIS PROPHYLAXIS
     Route: 048
     Dates: start: 20091005
  4. VERAPAMIL [Concomitant]
  5. BENDROFLUMETHIAZIDE [Concomitant]
  6. ENALAPRIL [Concomitant]

REACTIONS (1)
  - SYNOVIAL RUPTURE [None]
